FAERS Safety Report 7768681-2 (Version None)
Quarter: 2011Q3

REPORT INFORMATION
  Report Type: 
  Country: None (occurrence: None)
  Receive Date: 20110922
  Receipt Date: 20110309
  Transmission Date: 20111222
  Serious: No
  Sender: FDA-Public Use
  Company Number: US-ASTRAZENECA-2011SE13599

PATIENT
  Age: 10025 Day
  Sex: Female

DRUGS (2)
  1. METOPROLOL TARTRATE [Concomitant]
  2. SEROQUEL [Suspect]
     Route: 048

REACTIONS (10)
  - MENTAL DISORDER [None]
  - EATING DISORDER [None]
  - DELUSIONAL DISORDER, UNSPECIFIED TYPE [None]
  - HYPERTENSION [None]
  - HALLUCINATION, VISUAL [None]
  - MALAISE [None]
  - DELUSION [None]
  - AGGRESSION [None]
  - INSOMNIA [None]
  - DRUG DOSE OMISSION [None]
